FAERS Safety Report 9574317 (Version 2)
Quarter: 2013Q4

REPORT INFORMATION
  Report Type: Report from Study
  Country: AU (occurrence: AU)
  Receive Date: 20131001
  Receipt Date: 20131113
  Transmission Date: 20140711
  Serious: Yes (Death, Hospitalization, Other)
  Sender: FDA-Public Use
  Company Number: AU-TEVA-434758USA

PATIENT
  Age: 78 Year
  Sex: Male

DRUGS (26)
  1. BENDAMUSTINE [Suspect]
     Indication: NON-HODGKIN^S LYMPHOMA UNSPECIFIED HISTOLOGY INDOLENT
     Route: 042
     Dates: start: 20111128, end: 20120530
  2. OBINUTUZUMAB [Suspect]
     Indication: NON-HODGKIN^S LYMPHOMA UNSPECIFIED HISTOLOGY INDOLENT
     Route: 042
     Dates: start: 20111128
  3. OBINUTUZUMAB [Suspect]
     Route: 042
     Dates: start: 20120730
  4. OXYBUTYNIN [Concomitant]
     Indication: BENIGN PROSTATIC HYPERPLASIA
  5. CITRICAL D [Concomitant]
     Indication: NUTRITIONAL SUPPLEMENTATION
  6. METOCLOPRAMIDE [Concomitant]
     Indication: NAUSEA
     Dates: start: 20111128
  7. BACTRIM DS [Concomitant]
     Indication: ANTIFUNGAL PROPHYLAXIS
     Dates: start: 20120105
  8. RANITIDINE [Concomitant]
     Dates: start: 20111222
  9. RIFAMPICIN [Concomitant]
     Indication: TUBERCULOSIS
     Dates: start: 20120827
  10. CALTRATE [Concomitant]
     Indication: NUTRITIONAL SUPPLEMENTATION
     Dates: start: 20120722
  11. NEPRO [Concomitant]
     Indication: NUTRITIONAL SUPPLEMENTATION
     Dates: start: 20120823
  12. ISONIAZIDE [Concomitant]
     Indication: TUBERCULOSIS
     Dates: start: 20120828
  13. SODIBIC [Concomitant]
     Indication: PROPHYLAXIS
     Dates: start: 20111118
  14. GABAPENTIN [Concomitant]
     Indication: PRURITUS
     Dates: start: 2012
  15. ARANESP [Concomitant]
     Indication: RENAL FAILURE
     Dates: start: 20120228
  16. SEPTRIN [Concomitant]
     Indication: TUBERCULOSIS
     Dates: start: 20120818
  17. NEXIUM [Concomitant]
     Indication: GASTROOESOPHAGEAL REFLUX DISEASE
     Dates: start: 20120818
  18. TELFAST [Concomitant]
     Indication: PROPHYLAXIS
     Dates: start: 201209
  19. CHOLECALCIFEROL [Concomitant]
     Dates: start: 2012
  20. ALLOPURINOL [Concomitant]
     Dates: start: 20111110
  21. PYRIDOXINE [Concomitant]
     Indication: TUBERCULOSIS
     Dates: start: 20120828
  22. GLUCOSAMINE [Concomitant]
  23. SODIUM BICARBONATE [Concomitant]
     Indication: PRURITUS
  24. GENTAMICIN [Concomitant]
     Indication: PNEUMONIA
     Dates: start: 20130901, end: 20130901
  25. DEXTROSE [Concomitant]
     Indication: BLOOD GLUCOSE DECREASED
     Dates: start: 20130901, end: 20130901
  26. PLASMA, FRESH FROZEN [Concomitant]
     Dates: start: 20130901, end: 20130901

REACTIONS (1)
  - Upper gastrointestinal haemorrhage [Fatal]
